FAERS Safety Report 15901138 (Version 4)
Quarter: 2019Q1

REPORT INFORMATION
  Report Type: Spontaneous
  Country: GB (occurrence: GB)
  Receive Date: 20190201
  Receipt Date: 20190226
  Transmission Date: 20190417
  Serious: Yes (Death, Other)
  Sender: FDA-Public Use
  Company Number: PHHY2019GB023702

PATIENT
  Sex: Male

DRUGS (1)
  1. ESTRADOT [Suspect]
     Active Substance: ESTRADIOL
     Indication: PRODUCT USED FOR UNKNOWN INDICATION
     Dosage: UNK
     Route: 062

REACTIONS (4)
  - Blood magnesium decreased [Unknown]
  - Circulatory collapse [Unknown]
  - Death [Fatal]
  - Blood zinc decreased [Unknown]

NARRATIVE: CASE EVENT DATE: 2017
